FAERS Safety Report 10069991 (Version 2)
Quarter: 2014Q2

REPORT INFORMATION
  Report Type: Spontaneous
  Country: FR (occurrence: FR)
  Receive Date: 20140410
  Receipt Date: 20140603
  Transmission Date: 20141212
  Serious: Yes (Hospitalization)
  Sender: FDA-Public Use
  Company Number: FR-ROCHE-1381158

PATIENT
  Age: 69 Year
  Sex: Female

DRUGS (3)
  1. HERCEPTIN [Suspect]
     Indication: BREAST CANCER
     Route: 042
     Dates: start: 201301, end: 201312
  2. TRAMADOL [Concomitant]
     Indication: PAIN
  3. CEBUTID [Concomitant]
     Route: 065
     Dates: start: 20140304, end: 20140308

REACTIONS (1)
  - Systemic lupus erythematosus [Not Recovered/Not Resolved]
